FAERS Safety Report 25240554 (Version 1)
Quarter: 2025Q2

REPORT INFORMATION
  Report Type: Spontaneous
  Country: US (occurrence: US)
  Receive Date: 20250425
  Receipt Date: 20250425
  Transmission Date: 20250717
  Serious: No
  Sender: BAYER HEALTHCARE PHARMACEUTICALS INC.
  Company Number: US-BAYER-2025A056345

PATIENT
  Age: 41 Year
  Sex: Male

DRUGS (2)
  1. JIVI [Suspect]
     Active Substance: DAMOCTOCOG ALFA PEGOL
     Indication: Factor VIII deficiency
     Dosage: JIVI 2000 UNITS/INFUSE 4315 UNITS (3884-4746) SLOW IV PUSH ONCE EVERY 5 DAYS AND DAILY AS NEEDED FOR
     Route: 042
     Dates: start: 202303
  2. JIVI [Suspect]
     Active Substance: DAMOCTOCOG ALFA PEGOL
     Indication: Haemorrhage
     Route: 042

REACTIONS (1)
  - Joint swelling [None]

NARRATIVE: CASE EVENT DATE: 20250409
